FAERS Safety Report 16875576 (Version 4)
Quarter: 2022Q4

REPORT INFORMATION
  Report Type: Spontaneous
  Country: US (occurrence: None)
  Receive Date: 20191002
  Receipt Date: 20221108
  Transmission Date: 20230113
  Serious: Yes (Other)
  Sender: FDA-Public Use
  Company Number: 2019SF36478

PATIENT
  Age: 59 Year
  Sex: Female
  Weight: 76.2 kg

DRUGS (68)
  1. NEXIUM 24HR [Suspect]
     Active Substance: ESOMEPRAZOLE MAGNESIUM
     Indication: Gastrooesophageal reflux disease
     Route: 048
     Dates: start: 2015, end: 2019
  2. NEXIUM 24HR [Suspect]
     Active Substance: ESOMEPRAZOLE MAGNESIUM
     Indication: Gastrooesophageal reflux disease
     Dosage: OTC
     Route: 048
     Dates: start: 2015
  3. NEXIUM 24HR [Suspect]
     Active Substance: ESOMEPRAZOLE MAGNESIUM
     Indication: Gastrooesophageal reflux disease
     Dosage: OTC, 40MG
     Route: 048
     Dates: start: 20160817
  4. NEXIUM [Suspect]
     Active Substance: ESOMEPRAZOLE MAGNESIUM
     Indication: Gastrooesophageal reflux disease
     Route: 048
     Dates: start: 2006, end: 2016
  5. NEXIUM [Suspect]
     Active Substance: ESOMEPRAZOLE MAGNESIUM
     Indication: Gastrooesophageal reflux disease
     Route: 048
     Dates: start: 20130227
  6. NEXIUM [Suspect]
     Active Substance: ESOMEPRAZOLE MAGNESIUM
     Indication: Gastrooesophageal reflux disease
     Route: 048
     Dates: start: 20170430
  7. PRILOSEC OTC [Suspect]
     Active Substance: OMEPRAZOLE MAGNESIUM
     Route: 048
  8. PREVACID 24 HR [Suspect]
     Active Substance: LANSOPRAZOLE
     Route: 065
  9. RESTASIS [Concomitant]
     Active Substance: CYCLOSPORINE
     Indication: Eye disorder
     Dates: start: 2019
  10. AMLODIPINE [Concomitant]
     Active Substance: AMLODIPINE BESYLATE
     Indication: Hypertension
     Dates: start: 2019
  11. METOPROLOL [Concomitant]
     Active Substance: METOPROLOL
     Indication: Hypertension
     Dates: start: 2014
  12. METOPROLOL [Concomitant]
     Active Substance: METOPROLOL
     Indication: Hypertension
     Dates: start: 20171106
  13. METOPROLOL [Concomitant]
     Active Substance: METOPROLOL
     Indication: Hypertension
     Dates: start: 20171212
  14. TRAMADOL [Concomitant]
     Active Substance: TRAMADOL
     Indication: Pain
     Dates: start: 2014
  15. ASPIRIN [Concomitant]
     Active Substance: ASPIRIN
     Indication: Routine health maintenance
     Dates: start: 2016
  16. VITAMIN B [Concomitant]
     Active Substance: VITAMIN B
     Indication: Routine health maintenance
     Dates: start: 2014
  17. VITAMIN D [Concomitant]
     Active Substance: VITAMIN D NOS
     Indication: Bone disorder
     Dates: start: 2014
  18. BIOTIN [Concomitant]
     Active Substance: BIOTIN
     Indication: Hair metal test
     Dates: start: 2014
  19. COENZYME Q10 [Concomitant]
     Active Substance: DIETARY SUPPLEMENT\UBIDECARENONE
     Indication: Cardiac disorder
     Dates: start: 2013, end: 2018
  20. RANIDINE [Concomitant]
     Dates: start: 2009
  21. LINZESS [Concomitant]
     Active Substance: LINACLOTIDE
     Indication: Irritable bowel syndrome
     Dates: start: 201711, end: 201801
  22. LINZESS [Concomitant]
     Active Substance: LINACLOTIDE
     Indication: Irritable bowel syndrome
     Dates: start: 20171102
  23. LINZESS [Concomitant]
     Active Substance: LINACLOTIDE
     Indication: Irritable bowel syndrome
     Dates: start: 20171130
  24. MEMANTINE [Concomitant]
     Active Substance: MEMANTINE
     Indication: Dementia
     Dates: start: 201812
  25. CHLORTHALIDONE [Concomitant]
     Active Substance: CHLORTHALIDONE
     Indication: Hypertension
     Dates: start: 201812
  26. CHLORTHALIDONE [Concomitant]
     Active Substance: CHLORTHALIDONE
     Indication: Hypertension
     Route: 048
     Dates: start: 20191113
  27. CHLORTHALIDONE [Concomitant]
     Active Substance: CHLORTHALIDONE
     Indication: Hypertension
     Route: 048
     Dates: start: 20181219
  28. VITAMIN D3 [Concomitant]
     Active Substance: CHOLECALCIFEROL
     Indication: Bone disorder
     Dates: start: 2014
  29. AMOXICILLIN [Concomitant]
     Active Substance: AMOXICILLIN
     Indication: Infection
     Dates: start: 201308
  30. BACLOFEN [Concomitant]
     Active Substance: BACLOFEN
     Indication: Pain
     Dates: start: 201511, end: 201609
  31. BACLOFEN [Concomitant]
     Active Substance: BACLOFEN
     Indication: Muscle spasms
     Dates: start: 201511, end: 201609
  32. BACLOFEN [Concomitant]
     Active Substance: BACLOFEN
     Indication: Pain
     Dates: start: 2016
  33. BACLOFEN [Concomitant]
     Active Substance: BACLOFEN
     Indication: Muscle spasms
     Dates: start: 2016
  34. HYDROCODONE [Concomitant]
     Active Substance: HYDROCODONE
     Indication: Pain
     Dates: start: 201308, end: 201503
  35. TRAZODONE [Concomitant]
     Active Substance: TRAZODONE HYDROCHLORIDE
     Indication: Sleep disorder
     Dates: start: 2014
  36. PREDNISONE [Concomitant]
     Active Substance: PREDNISONE
     Route: 048
     Dates: start: 20180403
  37. TRIAMTERENE [Concomitant]
     Active Substance: TRIAMTERENE
  38. SODIUM BICARBONATE [Concomitant]
     Active Substance: SODIUM BICARBONATE
  39. BENZONATATE [Concomitant]
     Active Substance: BENZONATATE
     Dates: start: 20180130
  40. GABAPENTIN [Concomitant]
     Active Substance: GABAPENTIN
  41. SPIRONOLACTONE [Concomitant]
     Active Substance: SPIRONOLACTONE
  42. ONDANSETRON [Concomitant]
     Active Substance: ONDANSETRON
  43. PREMARIN [Concomitant]
     Active Substance: ESTROGENS, CONJUGATED
  44. TIZANIDINE [Concomitant]
     Active Substance: TIZANIDINE
  45. LACTULOSE [Concomitant]
     Active Substance: LACTULOSE
  46. IBUPROFEN [Concomitant]
     Active Substance: IBUPROFEN
  47. LORAZEPAM [Concomitant]
     Active Substance: LORAZEPAM
     Dates: start: 20140922
  48. NABUMETONE [Concomitant]
     Active Substance: NABUMETONE
  49. FLUCONAZOLE [Concomitant]
     Active Substance: FLUCONAZOLE
  50. POTASSIUM [Concomitant]
     Active Substance: POTASSIUM
  51. DICLOFENAC [Concomitant]
     Active Substance: DICLOFENAC
  52. NITROFURANTOIN [Concomitant]
     Active Substance: NITROFURANTOIN
     Dates: start: 20190131
  53. CLOBETASOL [Concomitant]
     Active Substance: CLOBETASOL
     Dates: start: 20190131
  54. DIVALPROEX SODIUM [Concomitant]
     Active Substance: DIVALPROEX SODIUM
     Dates: start: 20171002
  55. PERCOCET [Concomitant]
     Active Substance: ACETAMINOPHEN\OXYCODONE HYDROCHLORIDE
  56. DARVOCET [Concomitant]
     Active Substance: ACETAMINOPHEN\PROPOXYPHENE HYDROCHLORIDE
     Dates: start: 20190923
  57. DEXILANT [Concomitant]
     Active Substance: DEXLANSOPRAZOLE
     Indication: Gastrooesophageal reflux disease
  58. LEVSIN [Concomitant]
     Active Substance: HYOSCYAMINE SULFATE
  59. ROBAXIN [Concomitant]
     Active Substance: METHOCARBAMOL
  60. CYMBALTA [Concomitant]
     Active Substance: DULOXETINE HYDROCHLORIDE
  61. NADOLOL [Concomitant]
     Active Substance: NADOLOL
  62. PRAVASTATIN [Concomitant]
     Active Substance: PRAVASTATIN
  63. CAMBIA [Concomitant]
     Active Substance: DICLOFENAC POTASSIUM
  64. ATROVENT [Concomitant]
     Active Substance: IPRATROPIUM BROMIDE
  65. MEPERIDINE [Concomitant]
     Active Substance: MEPERIDINE
  66. MORPHINE [Concomitant]
     Active Substance: MORPHINE
  67. FENTANYL [Concomitant]
     Active Substance: FENTANYL
  68. PROTONIX [Concomitant]
     Active Substance: PANTOPRAZOLE SODIUM

REACTIONS (3)
  - Chronic kidney disease [Not Recovered/Not Resolved]
  - Acute kidney injury [Unknown]
  - Renal failure [Unknown]

NARRATIVE: CASE EVENT DATE: 20130101
